FAERS Safety Report 15452107 (Version 1)
Quarter: 2018Q4

REPORT INFORMATION
  Report Type: Spontaneous
  Country: NL (occurrence: NL)
  Receive Date: 20181001
  Receipt Date: 20181001
  Transmission Date: 20190204
  Serious: Yes (Other)
  Sender: FDA-Public Use
  Company Number: NL-SA-2018SA226048

PATIENT
  Sex: Female

DRUGS (1)
  1. LEMTRADA [Suspect]
     Active Substance: ALEMTUZUMAB
     Dosage: 12 MG, UNK
     Route: 041
     Dates: start: 20180813

REACTIONS (4)
  - Exposure during pregnancy [Unknown]
  - Feeling abnormal [Unknown]
  - Abortion [Unknown]
  - Diarrhoea [Unknown]
